FAERS Safety Report 24449249 (Version 1)
Quarter: 2024Q4

REPORT INFORMATION
  Report Type: Spontaneous
  Country: FR (occurrence: FR)
  Receive Date: 20241017
  Receipt Date: 20241017
  Transmission Date: 20250114
  Serious: Yes (Hospitalization, Other)
  Sender: CELLTRION
  Company Number: FR-JNJFOC-20231170186

PATIENT

DRUGS (5)
  1. INFLIXIMAB [Suspect]
     Active Substance: INFLIXIMAB
     Indication: Product used for unknown indication
     Dosage: UNK
     Dates: end: 20230830
  2. INFLIXIMAB [Suspect]
     Active Substance: INFLIXIMAB
     Indication: Inflammatory bowel disease
     Dosage: UNK
     Route: 042
     Dates: start: 20151015, end: 2017
  3. STELARA [Suspect]
     Active Substance: USTEKINUMAB
     Indication: Inflammatory bowel disease
     Dosage: DATE OF LAST STELARA ADMINISTRATION ON 06-OCT-2023
     Route: 058
     Dates: start: 2023
  4. INFLIXIMAB [Suspect]
     Active Substance: INFLIXIMAB
     Indication: Inflammatory bowel disease
     Dosage: UNK
     Route: 042
     Dates: start: 20101123, end: 20121026
  5. AZATHIOPRINE [Concomitant]
     Active Substance: AZATHIOPRINE

REACTIONS (3)
  - Short-bowel syndrome [Not Recovered/Not Resolved]
  - Small intestinal perforation [Recovered/Resolved with Sequelae]
  - Peritonitis [Recovered/Resolved with Sequelae]

NARRATIVE: CASE EVENT DATE: 20230914
